FAERS Safety Report 12743665 (Version 2)
Quarter: 2016Q3

REPORT INFORMATION
  Report Type: Spontaneous
  Country: KR (occurrence: KR)
  Receive Date: 20160914
  Receipt Date: 20160915
  Transmission Date: 20161109
  Serious: Yes (Other)
  Sender: FDA-Public Use
  Company Number: KR-B.I. PHARMACEUTICALS,INC./RIDGEFIELD-2016-BI-59108RK

PATIENT
  Age: 56 Year
  Sex: Female
  Weight: 47.5 kg

DRUGS (8)
  1. GILOTRIF [Suspect]
     Active Substance: AFATINIB
     Dosage: 30 MG
     Route: 048
     Dates: start: 20150218, end: 20160512
  2. LIPITOR [Concomitant]
     Active Substance: ATORVASTATIN CALCIUM
     Indication: ARTERIOSCLEROSIS
     Dosage: 10 MG
     Route: 048
     Dates: start: 20150206
  3. FEROBA-U [Concomitant]
     Dosage: 80 MG
     Route: 048
     Dates: start: 20150206
  4. GILOTRIF [Suspect]
     Active Substance: AFATINIB
     Indication: NON-SMALL CELL LUNG CANCER
     Dosage: 40 MG
     Route: 048
     Dates: start: 20150213, end: 20150217
  5. FEROBA-U [Concomitant]
     Indication: ANAEMIA
     Dosage: 80 MG
     Route: 048
     Dates: start: 20150206
  6. SKAD [Concomitant]
     Active Substance: AMLODIPINE MALEATE
     Indication: HYPERTENSION
     Dosage: 5 MG
     Route: 048
     Dates: start: 20150206
  7. LIPITOR [Concomitant]
     Active Substance: ATORVASTATIN CALCIUM
     Dosage: 5 MG
     Route: 048
     Dates: start: 20150206
  8. SKAD [Concomitant]
     Active Substance: AMLODIPINE MALEATE
     Dosage: 10 MG
     Route: 048
     Dates: start: 20150206

REACTIONS (1)
  - Disease progression [Not Recovered/Not Resolved]

NARRATIVE: CASE EVENT DATE: 20160512
